FAERS Safety Report 7681132-1 (Version None)
Quarter: 2011Q3

REPORT INFORMATION
  Report Type: 
  Country: None (occurrence: None)
  Receive Date: 20110812
  Receipt Date: 20110808
  Transmission Date: 20111222
  Serious: Yes (Other)
  Sender: FDA-Public Use
  Company Number: US-PFIZER INC-2011181997

PATIENT
  Sex: Female
  Weight: 56.25 kg

DRUGS (1)
  1. LYRICA [Suspect]
     Indication: DIABETIC NEUROPATHY
     Dosage: UNK
     Dates: start: 20110701, end: 20110101

REACTIONS (2)
  - DRUG INEFFECTIVE [None]
  - BACK PAIN [None]
